FAERS Safety Report 18549675 (Version 1)
Quarter: 2020Q4

REPORT INFORMATION
  Report Type: Spontaneous
  Country: US (occurrence: US)
  Receive Date: 20201126
  Receipt Date: 20201126
  Transmission Date: 20210114
  Serious: Yes (Other)
  Sender: FDA-Public Use
  Company Number: US-ALLERGAN-2043491US

PATIENT
  Sex: Female

DRUGS (3)
  1. NUFACE MINI TONER [Concomitant]
  2. BOTOX [Suspect]
     Active Substance: ONABOTULINUMTOXINA
     Indication: MIGRAINE
     Dosage: UNK UNK, SINGLE
     Dates: start: 2016, end: 2016
  3. JUVEDERM [Concomitant]
     Active Substance: HYALURONIC ACID

REACTIONS (5)
  - Radial nerve palsy [Unknown]
  - Facial paralysis [Recovered/Resolved]
  - Acne [Recovered/Resolved]
  - Road traffic accident [Unknown]
  - Monoplegia [Unknown]

NARRATIVE: CASE EVENT DATE: 2016
